FAERS Safety Report 16255546 (Version 1)
Quarter: 2019Q2

REPORT INFORMATION
  Report Type: Spontaneous
  Country: GB (occurrence: GB)
  Receive Date: 20190430
  Receipt Date: 20190430
  Transmission Date: 20190711
  Serious: Yes (Other)
  Sender: FDA-Public Use
  Company Number: GB-AUROBINDO-AUR-APL-2019-022481

PATIENT

DRUGS (6)
  1. AZITHROMYCIN ANHYDROUS. [Suspect]
     Active Substance: AZITHROMYCIN ANHYDROUS
     Dosage: 250 MILLIGRAM, ONCE A DAY
     Route: 065
  2. PRISTINAMYCIN [Suspect]
     Active Substance: PRISTINAMYCIN
     Indication: MYCOPLASMA GENITALIUM INFECTION
     Dosage: 1 G, QD
     Route: 016
  3. AZITHROMYCIN ANHYDROUS. [Suspect]
     Active Substance: AZITHROMYCIN ANHYDROUS
     Indication: MYCOPLASMA GENITALIUM INFECTION
     Dosage: 1 G, UNK
     Route: 065
     Dates: start: 201701
  4. DOXYCYCLINE. [Suspect]
     Active Substance: DOXYCYCLINE
     Indication: URETHRITIS CHLAMYDIAL
     Dosage: UNK
     Route: 016
     Dates: start: 201711
  5. MOXIFLOXACIN. [Suspect]
     Active Substance: MOXIFLOXACIN
     Indication: MYCOPLASMA GENITALIUM INFECTION
     Dosage: UNK (ONE DOSE)
     Route: 016
     Dates: start: 201702
  6. PRISTINAMYCIN [Suspect]
     Active Substance: PRISTINAMYCIN
     Dosage: UNK
     Route: 065

REACTIONS (4)
  - Drug resistance [Unknown]
  - Urethritis mycoplasmal [Recovered/Resolved]
  - Condition aggravated [Recovered/Resolved]
  - Urinary tract infection [Recovered/Resolved]
